FAERS Safety Report 10430620 (Version 6)
Quarter: 2015Q1

REPORT INFORMATION
  Report Type: Spontaneous
  Country: US (occurrence: US)
  Receive Date: 20140904
  Receipt Date: 20150226
  Transmission Date: 20150720
  Serious: Yes (Other)
  Sender: FDA-Public Use
  Company Number: US-BAYER-2014-128426

PATIENT
  Age: 32 Year
  Sex: Female
  Weight: 94.33 kg

DRUGS (1)
  1. MIRENA [Suspect]
     Active Substance: LEVONORGESTREL
     Indication: CONTRACEPTION
     Dosage: 20 MCG/24HR, CONT
     Route: 015
     Dates: start: 20090811, end: 20140821

REACTIONS (6)
  - Embedded device [Not Recovered/Not Resolved]
  - Device deposit issue [None]
  - Device breakage [None]
  - Complication of device removal [None]
  - Device difficult to use [None]
  - Device breakage [None]

NARRATIVE: CASE EVENT DATE: 201408
